FAERS Safety Report 14544076 (Version 2)
Quarter: 2018Q2

REPORT INFORMATION
  Report Type: Spontaneous
  Country: US (occurrence: US)
  Receive Date: 20180216
  Receipt Date: 20180423
  Transmission Date: 20180711
  Serious: No
  Sender: FDA-Public Use
  Company Number: US-PFIZER INC-2018068551

PATIENT
  Age: 59 Year
  Sex: Male

DRUGS (2)
  1. CABERGOLINE. [Suspect]
     Active Substance: CABERGOLINE
     Dosage: 1 MG, 2X/WEEK
  2. LANREOTIDE [Suspect]
     Active Substance: LANREOTIDE
     Dosage: 120 MG, EVERY 4 WEEKS
     Route: 058

REACTIONS (1)
  - Dyspnoea [Unknown]
